FAERS Safety Report 5885787-3 (Version None)
Quarter: 2008Q3

REPORT INFORMATION
  Report Type: 
  Country: None (occurrence: None)
  Receive Date: 20080917
  Receipt Date: 20080908
  Transmission Date: 20090109
  Serious: Yes (Other)
  Sender: FDA-Public Use
  Company Number: US-RANBAXY-2008RR-17940

PATIENT

DRUGS (2)
  1. LORAZEPAM [Suspect]
     Dosage: 0.5 MG, UNK
  2. DEXMEDETOMIDINE [Concomitant]
     Indication: ANXIETY

REACTIONS (1)
  - RESPIRATORY FAILURE [None]
